FAERS Safety Report 6663193-1 (Version None)
Quarter: 2010Q2

REPORT INFORMATION
  Report Type: 
  Country: None (occurrence: None)
  Receive Date: 20100401
  Receipt Date: 20100323
  Transmission Date: 20101027
  Serious: Yes (Hospitalization, Other)
  Sender: FDA-Public Use
  Company Number: PHHO2008US08021

PATIENT
  Sex: Female

DRUGS (6)
  1. AFINITOR [Suspect]
     Indication: NON-SMALL CELL LUNG CANCER
     Dosage: 5 MG
     Dates: start: 20080303
  2. DOCETAXEL [Suspect]
     Indication: NON-SMALL CELL LUNG CANCER
     Dosage: UNK
     Dates: start: 20080116, end: 20080206
  3. LEVAQUIN [Concomitant]
  4. DIGOXIN [Concomitant]
  5. TOPROL-XL [Concomitant]
  6. REGLAN [Concomitant]
     Indication: NAUSEA

REACTIONS (4)
  - ANAEMIA [None]
  - DYSPNOEA [None]
  - NAUSEA [None]
  - NON-SMALL CELL LUNG CANCER [None]
